FAERS Safety Report 6394349-3 (Version None)
Quarter: 2009Q4

REPORT INFORMATION
  Report Type: 
  Country: None (occurrence: None)
  Receive Date: 20091006
  Receipt Date: 20090923
  Transmission Date: 20100525
  Serious: Yes (Hospitalization)
  Sender: FDA-Public Use
  Company Number: 230001J09ARG

PATIENT
  Sex: Male

DRUGS (2)
  1. REBIF [Suspect]
  2. QURA PLUS (REFRIANEX) [Concomitant]

REACTIONS (2)
  - ABSCESS ORAL [None]
  - TOOTHACHE [None]
